FAERS Safety Report 9286178 (Version 1)
Quarter: 2013Q2

REPORT INFORMATION
  Report Type: Spontaneous
  Country: CA (occurrence: CA)
  Receive Date: 20130513
  Receipt Date: 20130513
  Transmission Date: 20140414
  Serious: Yes (Other)
  Sender: FDA-Public Use
  Company Number: CA-JNJFOC-20130504933

PATIENT
  Age: 12 Year
  Sex: Male

DRUGS (2)
  1. INFLIXIMAB, RECOMBINANT [Suspect]
     Indication: CROHN^S DISEASE
     Dosage: INDUCTIONS DOSES AT 0, 2 AND 6 WEEKS
     Route: 042
  2. METHOTREXATE [Concomitant]
     Route: 048

REACTIONS (1)
  - Psoriasis [Unknown]
